FAERS Safety Report 17892183 (Version 2)
Quarter: 2020Q4

REPORT INFORMATION
  Report Type: Report from Study
  Country: US (occurrence: US)
  Receive Date: 20200612
  Receipt Date: 20201209
  Transmission Date: 20210113
  Serious: Yes (Other)
  Sender: FDA-Public Use
  Company Number: NVSC2020US164080

PATIENT
  Age: 83 Year
  Sex: Female

DRUGS (1)
  1. ENTRESTO [Suspect]
     Active Substance: SACUBITRIL\VALSARTAN
     Indication: CARDIAC FAILURE CONGESTIVE
     Dosage: 1 DF, BID
     Route: 048
     Dates: start: 202001

REACTIONS (4)
  - Back injury [Recovering/Resolving]
  - Cataract [Not Recovered/Not Resolved]
  - Fall [Recovering/Resolving]
  - Throat clearing [Unknown]

NARRATIVE: CASE EVENT DATE: 202007
